FAERS Safety Report 8840414 (Version 1)
Quarter: 2012Q4

REPORT INFORMATION
  Report Type: 
  Country: US (occurrence: US)
  Receive Date: 20121015
  Receipt Date: 20121015
  Transmission Date: 20130627
  Serious: No
  Sender: FDA-Public Use
  Company Number: US-009507513-1210USA003336

PATIENT
  Sex: Male

DRUGS (7)
  1. TEMODAR [Suspect]
     Indication: BRAIN NEOPLASM
     Dosage: 140 mg, qd
     Route: 048
     Dates: start: 20120828, end: 20121001
  2. ZOCOR [Concomitant]
  3. CYTOMEL [Concomitant]
  4. TEGRETOL [Concomitant]
  5. PRILOSEC [Concomitant]
  6. METOPROLOL [Concomitant]
  7. DEXAMETHASONE [Concomitant]

REACTIONS (1)
  - Platelet count decreased [Not Recovered/Not Resolved]
